FAERS Safety Report 14667977 (Version 1)
Quarter: 2018Q1

REPORT INFORMATION
  Report Type: Report from Study
  Country: None (occurrence: FR)
  Receive Date: 20180322
  Receipt Date: 20180322
  Transmission Date: 20180509
  Serious: Yes (Other)
  Sender: FDA-Public Use
  Company Number: FR-VELOXIS PHARMACEUTICALS-2044305

PATIENT
  Age: 37 Year
  Sex: Male
  Weight: 71.5 kg

DRUGS (21)
  1. ENVARSUS XR [Suspect]
     Active Substance: TACROLIMUS
     Indication: PROPHYLAXIS AGAINST TRANSPLANT REJECTION
     Route: 048
     Dates: start: 20171128
  2. ADVAGRAF [Concomitant]
     Active Substance: TACROLIMUS
     Dates: start: 20161214, end: 20170206
  3. CORTANCYL [Concomitant]
     Active Substance: PREDNISONE
     Dates: start: 20160816
  4. SOLU-MEDROL [Suspect]
     Active Substance: METHYLPREDNISOLONE SODIUM SUCCINATE
     Route: 042
     Dates: start: 20180219, end: 20180221
  5. ADVAGRAF [Concomitant]
     Active Substance: TACROLIMUS
     Dates: start: 20160831, end: 20160913
  6. ADVAGRAF [Concomitant]
     Active Substance: TACROLIMUS
     Dates: start: 20161006, end: 20161118
  7. ADVAGRAF [Concomitant]
     Active Substance: TACROLIMUS
     Dates: start: 20170207, end: 20170327
  8. ENTOCORT [Concomitant]
     Active Substance: BUDESONIDE
     Dates: start: 20170830, end: 20180221
  9. RAMIPRIL. [Concomitant]
     Active Substance: RAMIPRIL
     Dates: start: 20170803
  10. ZYMAD [Concomitant]
     Active Substance: CHOLECALCIFEROL
     Dates: start: 20161020
  11. PREDNISOLONE. [Concomitant]
     Active Substance: PREDNISOLONE
  12. ADVAGRAF [Concomitant]
     Active Substance: TACROLIMUS
     Dates: start: 20160820, end: 20160822
  13. ADVAGRAF [Concomitant]
     Active Substance: TACROLIMUS
     Dates: start: 20160823, end: 20160830
  14. ADVAGRAF [Concomitant]
     Active Substance: TACROLIMUS
     Dates: start: 20170328, end: 20170524
  15. LERCAN [Concomitant]
     Active Substance: LERCANIDIPINE
     Dates: start: 20171128
  16. MYFORTIC [Concomitant]
     Active Substance: MYCOPHENOLATE SODIUM
     Dates: start: 20160814
  17. ADVAGRAF [Concomitant]
     Active Substance: TACROLIMUS
     Dates: start: 20160814, end: 20160819
  18. ADVAGRAF [Concomitant]
     Active Substance: TACROLIMUS
     Dates: start: 20171006, end: 20171128
  19. ADVAGRAF [Concomitant]
     Active Substance: TACROLIMUS
     Dates: start: 20160914, end: 20161005
  20. ADVAGRAF [Concomitant]
     Active Substance: TACROLIMUS
     Dates: start: 20161119, end: 20161213
  21. BACTRIM [Concomitant]
     Active Substance: SULFAMETHOXAZOLE\TRIMETHOPRIM
     Dates: start: 20180222

REACTIONS (5)
  - Muscle spasms [Not Recovered/Not Resolved]
  - Hypertension [Recovered/Resolved]
  - Hyperglycaemia [Recovered/Resolved]
  - Vomiting [Recovered/Resolved]
  - Arteriovenous fistula thrombosis [Not Recovered/Not Resolved]

NARRATIVE: CASE EVENT DATE: 20180220
